FAERS Safety Report 21103036 (Version 2)
Quarter: 2022Q3

REPORT INFORMATION
  Report Type: Spontaneous
  Country: JP (occurrence: JP)
  Receive Date: 20220720
  Receipt Date: 20220727
  Transmission Date: 20221027
  Serious: Yes (Other)
  Sender: FDA-Public Use
  Company Number: JP-MTPC-MTPC2022-0017452

PATIENT
  Age: 69 Year
  Sex: Male

DRUGS (8)
  1. ARGATROBAN [Suspect]
     Active Substance: ARGATROBAN
     Route: 065
  2. EDARAVONE [Suspect]
     Active Substance: EDARAVONE
     Route: 065
  3. CILOSTAZOL [Concomitant]
     Active Substance: CILOSTAZOL
     Indication: Vertebrobasilar insufficiency
     Route: 065
  4. CILOSTAZOL [Concomitant]
     Active Substance: CILOSTAZOL
     Indication: Cerebellar infarction
  5. ASPIRIN [Concomitant]
     Active Substance: ASPIRIN
     Indication: Vertebrobasilar insufficiency
     Route: 065
  6. ASPIRIN [Concomitant]
     Active Substance: ASPIRIN
     Indication: Cerebellar infarction
  7. CLOPIDOGREL [Concomitant]
     Active Substance: CLOPIDOGREL BISULFATE
     Indication: Vertebrobasilar insufficiency
     Route: 065
  8. CLOPIDOGREL [Concomitant]
     Active Substance: CLOPIDOGREL BISULFATE
     Indication: Cerebellar infarction

REACTIONS (1)
  - Cerebellar infarction [Unknown]
